FAERS Safety Report 7357305-4 (Version None)
Quarter: 2011Q1

REPORT INFORMATION
  Report Type: 
  Country: None (occurrence: None)
  Receive Date: 20110308
  Receipt Date: 20110222
  Transmission Date: 20110831
  Serious: Yes (Hospitalization)
  Sender: FDA-Public Use
  Company Number: 2011000867

PATIENT
  Age: 58 Year
  Sex: Female
  Weight: 63 kg

DRUGS (2)
  1. ERLOTINIB HYDROCHLORIDE [Suspect]
     Indication: ADENOCARCINOMA PANCREAS
     Dosage: (100 MG,QD),ORAL
     Route: 048
     Dates: start: 20091215, end: 20110201
  2. GEMCITABINE [Suspect]
     Indication: ADENOCARCINOMA PANCREAS
     Dosage: (100 (1000 MG/M2,OVER 30 MINUTES ON DAYS 1, 8 AND 15), INTRAVENOUS
     Route: 042
     Dates: start: 20091215, end: 20110125

REACTIONS (2)
  - DUODENAL OBSTRUCTION [None]
  - RASH [None]
